FAERS Safety Report 18174051 (Version 4)
Quarter: 2021Q2

REPORT INFORMATION
  Report Type: Spontaneous
  Country: IN (occurrence: IN)
  Receive Date: 20200819
  Receipt Date: 20210604
  Transmission Date: 20210717
  Serious: Yes (Other)
  Sender: FDA-Public Use
  Company Number: IN-PFIZER INC-2018442587

PATIENT
  Age: 72 Year
  Sex: Male
  Weight: 58 kg

DRUGS (1)
  1. CRIZALK [Suspect]
     Active Substance: CRIZOTINIB
     Indication: NON-SMALL CELL LUNG CANCER
     Dosage: 250 MG, 2X/DAY
     Route: 048
     Dates: start: 20180316

REACTIONS (8)
  - Neoplasm progression [Unknown]
  - Oedema peripheral [Unknown]
  - Laryngeal oedema [Unknown]
  - Diarrhoea [Unknown]
  - Vomiting [Unknown]
  - Photopsia [Unknown]
  - Nausea [Unknown]
  - Vocal cord disorder [Unknown]
